FAERS Safety Report 4634177-X (Version None)
Quarter: 2005Q2

REPORT INFORMATION
  Report Type: 
  Country: None (occurrence: None)
  Receive Date: 20050413
  Receipt Date: 20050405
  Transmission Date: 20051028
  Serious: Yes (Disabling, Other)
  Sender: FDA-Public Use
  Company Number: 200513057GDDC

PATIENT
  Age: 36 Year
  Sex: Male

DRUGS (8)
  1. RIFADIN [Suspect]
     Indication: TUBERCULOSIS
     Route: 048
     Dates: start: 20011001, end: 20021001
  2. ISONIAZID [Suspect]
     Indication: TUBERCULOSIS
     Route: 048
     Dates: start: 20010901, end: 20031001
  3. TEBRAZID [Suspect]
     Indication: TUBERCULOSIS
     Route: 048
     Dates: start: 20010901, end: 20031001
  4. ETIBI [Suspect]
     Indication: TUBERCULOSIS
     Route: 048
     Dates: start: 20010901, end: 20011001
  5. CIPROFLOXACIN [Concomitant]
     Dosage: DOSE: UNK
  6. VITAMIN B COMPLEX CAP [Concomitant]
     Indication: NEUROLOGICAL SYMPTOM
     Route: 048
     Dates: start: 20010101
  7. GINSENG [Concomitant]
     Indication: NEUROLOGICAL SYMPTOM
     Dosage: DOSE: UNK
     Route: 048
  8. ENERGIE FORCE [Concomitant]
     Indication: NEUROLOGICAL SYMPTOM
     Dosage: DOSE: UNK
     Route: 048

REACTIONS (3)
  - DISTURBANCE IN ATTENTION [None]
  - MENTAL DISORDER [None]
  - SOMNOLENCE [None]
